FAERS Safety Report 11800777 (Version 4)
Quarter: 2016Q2

REPORT INFORMATION
  Report Type: Report from Study
  Country: KR (occurrence: KR)
  Receive Date: 20151204
  Receipt Date: 20160425
  Transmission Date: 20160815
  Serious: Yes (Other)
  Sender: FDA-Public Use
  Company Number: KR-LEO PHARMA-238366

PATIENT
  Age: 81 Year
  Sex: Female

DRUGS (9)
  1. CELEBREX [Concomitant]
     Active Substance: CELECOXIB
     Indication: PRODUCT USED FOR UNKNOWN INDICATION
     Route: 048
     Dates: start: 20150214
  2. PICATO [Suspect]
     Active Substance: INGENOL MEBUTATE
     Indication: ACTINIC KERATOSIS
     Dosage: 0.015% (TUBE) DAILY 1
     Route: 061
     Dates: start: 20150217, end: 20150219
  3. BACTROBAN [Concomitant]
     Active Substance: MUPIROCIN\MUPIROCIN CALCIUM
     Indication: PRODUCT USED FOR UNKNOWN INDICATION
     Route: 061
     Dates: start: 20150303, end: 20150420
  4. MUCOLASE [Concomitant]
     Indication: PROPHYLAXIS
     Route: 048
     Dates: start: 20150421, end: 20150427
  5. PICATO [Suspect]
     Active Substance: INGENOL MEBUTATE
     Dosage: 0.015% (TUBE) DAILY 1
     Route: 061
     Dates: start: 20150303, end: 20150305
  6. RETAPAMULIN [Concomitant]
     Active Substance: RETAPAMULIN
     Indication: PROPHYLAXIS
     Dates: start: 20150421, end: 20150427
  7. PICATO [Suspect]
     Active Substance: INGENOL MEBUTATE
     Dosage: 0.015% (TUBE) DAILY 1
     Route: 061
     Dates: start: 20150130, end: 20150201
  8. STILLEN [Concomitant]
     Indication: PROPHYLAXIS
     Route: 048
     Dates: start: 20150421, end: 20150427
  9. CEPHAMETHYL [Concomitant]
     Indication: PROPHYLAXIS
     Route: 048
     Dates: start: 20150421, end: 20150427

REACTIONS (7)
  - Drug administered at inappropriate site [Unknown]
  - Application site erythema [Recovered/Resolved]
  - Application site exfoliation [Recovered/Resolved]
  - Application site swelling [Recovered/Resolved]
  - Application site scab [Recovered/Resolved]
  - Inappropriate schedule of drug administration [Unknown]
  - Squamous cell carcinoma [Recovered/Resolved]

NARRATIVE: CASE EVENT DATE: 20150217
